FAERS Safety Report 4863081-7 (Version None)
Quarter: 2005Q4

REPORT INFORMATION
  Report Type: 
  Country: None (occurrence: None)
  Receive Date: 20051221
  Receipt Date: 20051215
  Transmission Date: 20060501
  Serious: Yes (Hospitalization)
  Sender: FDA-Public Use
  Company Number: AU-MERCK-0512AUS00306

PATIENT
  Age: 82 Year
  Sex: Female

DRUGS (6)
  1. HYDROXYCHLOROQUINE SULFATE [Suspect]
     Indication: SYSTEMIC LUPUS ERYTHEMATOSUS
     Route: 048
  2. RAMIPRIL [Concomitant]
     Route: 048
  3. ESOMEPRAZOLE MAGNESIUM [Concomitant]
     Route: 048
  4. IRBESARTAN [Concomitant]
     Route: 048
  5. ZETIA [Suspect]
     Route: 048
     Dates: start: 20041206, end: 20050210
  6. AMIODARONE HYDROCHLORIDE [Suspect]
     Route: 048
     Dates: start: 20050124, end: 20050210

REACTIONS (10)
  - ALANINE AMINOTRANSFERASE INCREASED [None]
  - ANAEMIA [None]
  - ASPARTATE AMINOTRANSFERASE INCREASED [None]
  - BLOOD ALKALINE PHOSPHATASE INCREASED [None]
  - CARDIAC DISORDER [None]
  - CARDIAC FAILURE [None]
  - GAMMA-GLUTAMYLTRANSFERASE INCREASED [None]
  - HAEMOGLOBIN INCREASED [None]
  - LIVER FUNCTION TEST ABNORMAL [None]
  - RIGHT VENTRICULAR FAILURE [None]
